FAERS Safety Report 23551125 (Version 1)
Quarter: 2024Q1

REPORT INFORMATION
  Report Type: Spontaneous
  Country: GB (occurrence: GB)
  Receive Date: 20240222
  Receipt Date: 20240222
  Transmission Date: 20240410
  Serious: Yes (Other)
  Sender: FDA-Public Use
  Company Number: None

PATIENT
  Age: 52 Year
  Sex: Male
  Weight: 76 kg

DRUGS (2)
  1. ATORVASTATIN [Suspect]
     Active Substance: ATORVASTATIN
     Indication: Aortic stent insertion
     Dosage: 40MG; ;
     Route: 065
     Dates: start: 20210621
  2. ASPIRIN [Concomitant]
     Active Substance: ASPIRIN
     Indication: Aortic stent insertion
     Dates: start: 20210621

REACTIONS (2)
  - Erectile dysfunction [Not Recovered/Not Resolved]
  - Alopecia [Not Recovered/Not Resolved]
